FAERS Safety Report 25478233 (Version 2)
Quarter: 2025Q3

REPORT INFORMATION
  Report Type: Report from Study
  Country: CA (occurrence: CA)
  Receive Date: 20250625
  Receipt Date: 20250721
  Transmission Date: 20251020
  Serious: Yes (Other)
  Sender: TAKEDA
  Company Number: CA-TAKEDA-2025TUS052160

PATIENT
  Sex: Female

DRUGS (5)
  1. VEDOLIZUMAB [Suspect]
     Active Substance: VEDOLIZUMAB
     Indication: Colitis ulcerative
     Dates: start: 20250414, end: 20250526
  2. INFLIXIMAB [Concomitant]
     Active Substance: INFLIXIMAB
  3. PREDNISONE [Concomitant]
     Active Substance: PREDNISONE
  4. MESALAMINE [Concomitant]
     Active Substance: MESALAMINE
  5. IRON [Concomitant]
     Active Substance: IRON
     Indication: Supplementation therapy

REACTIONS (3)
  - Colitis ulcerative [Unknown]
  - Therapeutic response decreased [Unknown]
  - Gastrointestinal disorder [Unknown]
